FAERS Safety Report 9215104 (Version 2)
Quarter: 2013Q2

REPORT INFORMATION
  Report Type: Report from Study
  Country: US (occurrence: US)
  Receive Date: 20130405
  Receipt Date: 20130408
  Transmission Date: 20140414
  Serious: Yes (Other)
  Sender: FDA-Public Use
  Company Number: US-ABBOTT-13P-163-1070158-00

PATIENT
  Age: 48 Year
  Sex: Female
  Weight: 75.82 kg

DRUGS (4)
  1. HUMIRA [Suspect]
     Indication: ANKYLOSING SPONDYLITIS
     Dosage: EVERY 10-14 DAYS
     Dates: start: 2009
  2. HUMIRA [Suspect]
     Dosage: EVERY 10-14 DAYS
     Dates: start: 201210, end: 2013
  3. LEVOTHYROXIN [Concomitant]
     Indication: HYPOTHYROIDISM
  4. FLEXERIL [Concomitant]
     Indication: MUSCLE RELAXANT THERAPY

REACTIONS (8)
  - Foot fracture [Recovered/Resolved]
  - Pain in extremity [Recovered/Resolved]
  - Necrosis [Recovered/Resolved]
  - Impaired healing [Recovered/Resolved]
  - Localised infection [Recovered/Resolved]
  - Cellulitis [Recovered/Resolved]
  - Local swelling [Recovered/Resolved]
  - Vascular injury [Not Recovered/Not Resolved]
